FAERS Safety Report 9657342 (Version 1)
Quarter: 2013Q4

REPORT INFORMATION
  Report Type: Spontaneous
  Country: GB (occurrence: GB)
  Receive Date: 20131030
  Receipt Date: 20131030
  Transmission Date: 20140711
  Serious: Yes (Hospitalization)
  Sender: FDA-Public Use
  Company Number: GB-TEVA-440241ISR

PATIENT
  Age: 36 Year
  Sex: Male

DRUGS (4)
  1. VENLAFAXINE [Suspect]
     Indication: DEPRESSION
     Dosage: 375 MG/DAY
     Route: 065
     Dates: start: 200902
  2. QUETIAPINE [Suspect]
     Indication: DEPRESSION
     Dosage: AT NIGHT
     Route: 065
     Dates: start: 200905
  3. METHADONE [Suspect]
     Indication: DRUG DEPENDENCE
     Dosage: 90MG DAILY
     Route: 065
     Dates: start: 1997
  4. LEVOTHYROXINE SODIUM [Concomitant]
     Dosage: 50MICROG DAILY
     Route: 065
     Dates: start: 200812

REACTIONS (1)
  - Neuroleptic malignant syndrome [Recovering/Resolving]
